FAERS Safety Report 4758602-9 (Version None)
Quarter: 2005Q3

REPORT INFORMATION
  Report Type: 
  Country: None (occurrence: None)
  Receive Date: 20050826
  Receipt Date: 20050818
  Transmission Date: 20060218
  Serious: Yes (Hospitalization, Other)
  Sender: FDA-Public Use
  Company Number: HQWYE363210JUN05

PATIENT
  Age: 14 Year
  Sex: Female

DRUGS (9)
  1. AMIODARONE HCL [Suspect]
     Indication: VENTRICULAR ARRHYTHMIA
     Dosage: SEE IMAGE
     Route: 048
     Dates: start: 19970706, end: 19970713
  2. AMIODARONE HCL [Suspect]
     Indication: VENTRICULAR ARRHYTHMIA
     Dosage: SEE IMAGE
     Route: 048
     Dates: start: 19970714, end: 19970728
  3. AMIODARONE HCL [Suspect]
     Indication: VENTRICULAR ARRHYTHMIA
     Dosage: SEE IMAGE
     Route: 048
     Dates: start: 19970729, end: 19970801
  4. PROPRANOLOL [Concomitant]
  5. PROPRANOLOL [Concomitant]
  6. MEXILETINE HCL [Concomitant]
  7. MEXILETINE HCL [Concomitant]
  8. DISOPYRAMIDE [Concomitant]
  9. NEUQUINON (UBIDECARENONE) [Concomitant]

REACTIONS (11)
  - CONDITION AGGRAVATED [None]
  - ELECTROCARDIOGRAM QT PROLONGED [None]
  - ELECTROCARDIOGRAM U-WAVE ABNORMALITY [None]
  - MOVEMENT DISORDER [None]
  - MUSCULAR WEAKNESS [None]
  - PALPITATIONS [None]
  - SYNCOPE [None]
  - TORSADE DE POINTES [None]
  - VENTRICULAR EXTRASYSTOLES [None]
  - VENTRICULAR TACHYCARDIA [None]
  - VERTIGO [None]
